FAERS Safety Report 12865068 (Version 1)
Quarter: 2016Q4

REPORT INFORMATION
  Report Type: Spontaneous
  Country: US (occurrence: US)
  Receive Date: 20161018
  Receipt Date: 20161018
  Transmission Date: 20170207
  Serious: Yes (Hospitalization)
  Sender: FDA-Public Use
  Company Number: None

PATIENT
  Age: 70 Year
  Sex: Male
  Weight: 95 kg

DRUGS (1)
  1. RIVASTIGMINE. [Suspect]
     Active Substance: RIVASTIGMINE
     Indication: PARKINSON^S DISEASE
     Route: 061
     Dates: start: 20160208, end: 20160907

REACTIONS (5)
  - Rash morbilliform [None]
  - Tremor [None]
  - Confusional state [None]
  - Abnormal behaviour [None]
  - Delirium [None]

NARRATIVE: CASE EVENT DATE: 20160826
